FAERS Safety Report 17536448 (Version 1)
Quarter: 2020Q1

REPORT INFORMATION
  Report Type: Spontaneous
  Country: US (occurrence: US)
  Receive Date: 20200313
  Receipt Date: 20200313
  Transmission Date: 20200409
  Serious: Yes (Death, Life-Threatening, Hospitalization, Other)
  Sender: FDA-Public Use
  Company Number: US-AUROBINDO-AUR-APL-2020-012312

PATIENT
  Age: 63 Year
  Sex: Female

DRUGS (5)
  1. OSELTAMIVIR [Concomitant]
     Active Substance: OSELTAMIVIR
     Indication: INFLUENZA
     Dosage: 75 MILLIGRAM, TWO TIMES A DAY
     Route: 048
  2. PREDNISONE. [Suspect]
     Active Substance: PREDNISONE
     Indication: INFLUENZA
     Dosage: 50 MILLIGRAM, ONCE A DAY
     Route: 048
  3. METHYLPREDNISOLONE. [Suspect]
     Active Substance: METHYLPREDNISOLONE
     Indication: INFLUENZA
     Dosage: 125 MILLIGRAM 1 TOTAL
     Route: 042
  4. SALBUTAMOL [Concomitant]
     Active Substance: ALBUTEROL
     Indication: INFLUENZA
     Dosage: UNK NEBULIZED
     Route: 055
  5. IPRATROPIUM [Concomitant]
     Active Substance: IPRATROPIUM
     Indication: INFLUENZA
     Dosage: UNK NEBULIZED
     Route: 055

REACTIONS (6)
  - Bronchopulmonary aspergillosis [Fatal]
  - Cerebral haemorrhage [Fatal]
  - Brain abscess [Fatal]
  - Cerebral aspergillosis [Fatal]
  - Neurological decompensation [Fatal]
  - Aspergillus infection [Fatal]
